FAERS Safety Report 25367854 (Version 1)
Quarter: 2025Q2

REPORT INFORMATION
  Report Type: Other
  Country: US (occurrence: US)
  Receive Date: 20250528
  Receipt Date: 20250528
  Transmission Date: 20250716
  Serious: No
  Sender: BAJAJ MEDICAL, LLC
  Company Number: US-Bajaj Medical, LLC-2177577

PATIENT
  Age: 86 Year
  Sex: Female

DRUGS (1)
  1. CHLORHEXIDINE GLUCONATE [Suspect]
     Active Substance: CHLORHEXIDINE GLUCONATE

REACTIONS (1)
  - Accidental exposure to product [Recovered/Resolved]
